FAERS Safety Report 7218195-3 (Version None)
Quarter: 2010Q4

REPORT INFORMATION
  Report Type: 
  Country: None (occurrence: None)
  Receive Date: 20101230
  Receipt Date: 20101213
  Transmission Date: 20110411
  Serious: Yes (Hospitalization)
  Sender: FDA-Public Use
  Company Number: AUR-APL-2010-03186

PATIENT
  Age: 54 Year
  Sex: Female

DRUGS (5)
  1. RISPERIDONE [Suspect]
     Indication: PSYCHOTIC BEHAVIOUR
  2. SERTRALINE HYDROCHLORIDE [Suspect]
     Indication: DEPRESSIVE SYMPTOM
     Dosage: 150MG - DAILY -
  3. VENLAFAXINE [Suspect]
     Indication: DEPRESSIVE SYMPTOM
     Dosage: 300 MG
  4. LITHIUM CARBONATE [Suspect]
     Indication: DEPRESSIVE SYMPTOM
     Dosage: SEE IMAGE
  5. QUETIAPINE [Suspect]
     Indication: DEPRESSIVE SYMPTOM
     Dosage: 125 MG DAILY

REACTIONS (20)
  - ALANINE AMINOTRANSFERASE INCREASED [None]
  - ASPARTATE AMINOTRANSFERASE INCREASED [None]
  - BLOOD ALKALINE PHOSPHATASE INCREASED [None]
  - CREPITATIONS [None]
  - DRUG EFFECT DECREASED [None]
  - DRUG HYPERSENSITIVITY [None]
  - FACE OEDEMA [None]
  - GAMMA-GLUTAMYLTRANSFERASE INCREASED [None]
  - GENERALISED ERYTHEMA [None]
  - GLOSSITIS [None]
  - HEPATOMEGALY [None]
  - LYMPHADENOPATHY [None]
  - OEDEMA PERIPHERAL [None]
  - ORAL MUCOSAL ERYTHEMA [None]
  - PRURITUS [None]
  - PYREXIA [None]
  - RASH GENERALISED [None]
  - RASH MACULO-PAPULAR [None]
  - SKIN EXFOLIATION [None]
  - XEROSIS [None]
